FAERS Safety Report 8309330-4 (Version None)
Quarter: 2012Q2

REPORT INFORMATION
  Report Type: 
  Country: None (occurrence: None)
  Receive Date: 20120425
  Receipt Date: 20120416
  Transmission Date: 20120825
  Serious: Yes (Other)
  Sender: FDA-Public Use
  Company Number: US-ASTRAZENECA-2012SE25110

PATIENT
  Age: 69 Year
  Sex: Female
  Weight: 67.6 kg

DRUGS (34)
  1. ZOLOFT [Concomitant]
  2. SOTALOL HCL [Concomitant]
     Dates: start: 19970101
  3. MIRALAX [Concomitant]
     Dosage: STANDARD AMOUNT ONCE A DAY, AS NEEEDED 2 TIMES A DAY,
  4. GABAPENTIN [Concomitant]
  5. CYMBALTA [Concomitant]
  6. ZOLOFT [Concomitant]
  7. SYNTHROID [Concomitant]
  8. VITAMIN D [Concomitant]
     Dosage: 1500 IU, FREQUENCY UNKNOWN
  9. VITAMIN C WITH ROSEHIP [Concomitant]
  10. PANTOPRAZOLE [Concomitant]
     Indication: GASTROOESOPHAGEAL REFLUX DISEASE
  11. FLUTICASONE PROPIONATE [Concomitant]
     Dosage: 2 PUFF ONCE A DAY
  12. NHP [Concomitant]
     Dosage: 24 OR 25 AT BEDTIME
  13. ASPIRIN [Concomitant]
  14. COLACE [Concomitant]
  15. PHAYME [Concomitant]
  16. FLAXSEED [Concomitant]
     Dosage: 1000 MG 4 TIMES A DAY FOR OCCAISONAL USE
  17. FLUNISOLIDE NASAL [Concomitant]
     Dosage: 0.025 MGC, USP 0.025%.
  18. GENERIC FOR LASIX [Concomitant]
  19. FIBER CHOICE (PROBIOTIC) [Concomitant]
  20. VITAMIN B-12 [Concomitant]
  21. CALCIUM CALTRATE PLUS D [Concomitant]
     Dosage: 600 TWICE A DAY
  22. HOMOLOG R [Concomitant]
     Dosage: AFTER DINNER BETWEEN 6 TO 10 UNITS DEPENDING ON HER FOOD
  23. CRESTOR [Suspect]
     Indication: BLOOD CHOLESTEROL INCREASED
     Route: 048
  24. FLUTICASONE PROPIONATE [Concomitant]
     Dosage: 2 PUFF TWICE A DAY
  25. TRILIPIX [Concomitant]
  26. ALDACTONE [Concomitant]
  27. VITAMIN AND MINERAL PRENATAL SUPPLEMENT W/ FOLIC ACID CAP [Concomitant]
  28. CRESTOR [Suspect]
     Route: 048
     Dates: end: 20120414
  29. XANAX [Concomitant]
     Dosage: 0.5 MG AT BEDTIME AND 0.25 MG 3 TIMES IN A DAY
  30. MILK OF MAGNESIA TAB [Concomitant]
  31. GENERIC LORTAB [Concomitant]
     Dosage: 7.5 TO 500 MG AS NEEDED
  32. PLAVIX [Concomitant]
  33. ALLEGRA [Concomitant]
  34. SUSTENEX (PROBIOTIC) [Concomitant]

REACTIONS (7)
  - ERYTHEMA [None]
  - GAIT DISTURBANCE [None]
  - IMPAIRED HEALING [None]
  - FIBROMYALGIA [None]
  - VISION BLURRED [None]
  - SKIN EXFOLIATION [None]
  - LIMB INJURY [None]
